FAERS Safety Report 24996892 (Version 3)
Quarter: 2025Q1

REPORT INFORMATION
  Report Type: Report from Study
  Country: KR (occurrence: KR)
  Receive Date: 20250221
  Receipt Date: 20250312
  Transmission Date: 20250409
  Serious: Yes (Hospitalization)
  Sender: EISAI
  Company Number: KR-Eisai-EC-2025-184633

PATIENT
  Age: 42 Year
  Sex: Female

DRUGS (2)
  1. LENVATINIB [Suspect]
     Active Substance: LENVATINIB
     Indication: Adrenal gland cancer
     Dates: start: 20250124, end: 20250210
  2. PEMBROLIZUMAB [Suspect]
     Active Substance: PEMBROLIZUMAB
     Indication: Adrenal gland cancer
     Dosage: DOSE UNKNOWN
     Dates: start: 20250124

REACTIONS (3)
  - Hepatitis [Not Recovered/Not Resolved]
  - Aspartate aminotransferase increased [Recovered/Resolved with Sequelae]
  - Decreased appetite [Recovered/Resolved]

NARRATIVE: CASE EVENT DATE: 20250209
